FAERS Safety Report 7995629-8 (Version None)
Quarter: 2011Q4

REPORT INFORMATION
  Report Type: 
  Country: None (occurrence: None)
  Receive Date: 20111220
  Receipt Date: 20111215
  Transmission Date: 20120403
  Serious: No
  Sender: FDA-Public Use
  Company Number: US-PFIZER INC-2011290853

PATIENT
  Sex: Female
  Weight: 63 kg

DRUGS (8)
  1. PREMARIN [Suspect]
     Indication: DISTURBANCE IN ATTENTION
  2. PREMARIN [Suspect]
     Indication: OFF LABEL USE
     Dosage: 0.625 MG, DAILY
     Route: 048
     Dates: start: 19950101
  3. PREMARIN [Suspect]
     Indication: DEPRESSION
  4. PREMARIN [Suspect]
     Indication: FATIGUE
     Dosage: 0.3 MG, 1/4- 1/2 TAB DAILY
  5. PROGEST [Concomitant]
  6. PREMARIN [Suspect]
     Indication: MENOPAUSE
     Dosage: 0.15 MG, UNK
  7. PREMARIN [Suspect]
     Indication: MOOD SWINGS
  8. PREMARIN [Suspect]
     Indication: APHASIA

REACTIONS (1)
  - DRUG INEFFECTIVE [None]
